FAERS Safety Report 8834150 (Version 3)
Quarter: 2013Q3

REPORT INFORMATION
  Report Type: Spontaneous
  Country: US (occurrence: US)
  Receive Date: 20121010
  Receipt Date: 20130905
  Transmission Date: 20140515
  Serious: No
  Sender: FDA-Public Use
  Company Number: US-ASTRAZENECA-2012SE77115

PATIENT
  Age: 39 Year
  Sex: Female
  Weight: 132 kg

DRUGS (12)
  1. ATENOLOL [Suspect]
     Indication: TACHYCARDIA
     Dosage: 100 MG
     Route: 048
  2. CRESTOR [Suspect]
     Indication: BLOOD CHOLESTEROL INCREASED
     Route: 048
     Dates: start: 2011
  3. HCTZ [Suspect]
     Indication: HYPERTENSION
     Dosage: 25 MG
     Route: 065
  4. LISINOPRIL [Suspect]
     Indication: HYPERTENSION
     Dosage: 40 MG
     Route: 048
  5. NEXIUM [Suspect]
     Indication: GASTROOESOPHAGEAL REFLUX DISEASE
     Route: 048
     Dates: start: 2010, end: 201307
  6. PRILOSEC [Suspect]
     Route: 048
  7. ZANTAC [Concomitant]
  8. AMLODIPINE [Concomitant]
     Indication: HYPERTENSION
  9. METFORMIN [Concomitant]
     Indication: DIABETES MELLITUS
  10. GABAPENTIN [Concomitant]
     Indication: FIBROMYALGIA
  11. NORTRYPTILINE [Concomitant]
     Indication: FIBROMYALGIA
  12. MS CONTIN ER,IR [Concomitant]
     Indication: FIBROMYALGIA

REACTIONS (10)
  - Aphagia [Unknown]
  - Blood cholesterol increased [Unknown]
  - Fibromyalgia [Unknown]
  - Diabetic neuropathy [Unknown]
  - Weight decreased [Unknown]
  - Nausea [Unknown]
  - Gastrooesophageal reflux disease [Unknown]
  - Abdominal discomfort [Unknown]
  - Drug dose omission [Unknown]
  - Drug ineffective [Unknown]
